FAERS Safety Report 24560157 (Version 3)
Quarter: 2024Q4

REPORT INFORMATION
  Report Type: Spontaneous
  Country: CN (occurrence: CN)
  Receive Date: 20241029
  Receipt Date: 20241204
  Transmission Date: 20250115
  Serious: Yes (Hospitalization)
  Sender: REGENERON
  Company Number: CN-BAYER-2024A151556

PATIENT
  Age: 78 Year
  Sex: Male

DRUGS (1)
  1. EYLEA [Suspect]
     Active Substance: AFLIBERCEPT
     Indication: Age-related macular degeneration
     Dosage: ONCE, SOLUTION FOR INJECTION, 40 MG/ML
     Dates: start: 20241021, end: 20241021

REACTIONS (3)
  - Retinal haemorrhage [Not Recovered/Not Resolved]
  - Vitreous opacities [Not Recovered/Not Resolved]
  - Eye infection [Recovering/Resolving]

NARRATIVE: CASE EVENT DATE: 20241022
